FAERS Safety Report 13834810 (Version 2)
Quarter: 2018Q3

REPORT INFORMATION
  Report Type: Spontaneous
  Country: US (occurrence: US)
  Receive Date: 20170804
  Receipt Date: 20180803
  Transmission Date: 20181010
  Serious: No
  Sender: FDA-Public Use
  Company Number: US-DRREDDYS-USA/USA/17/0091259

PATIENT
  Age: 79 Year
  Sex: Male

DRUGS (2)
  1. CARBIDOPA/LEVODOPA [Concomitant]
     Active Substance: CARBIDOPA\LEVODOPA
     Indication: TREMOR
     Route: 065
  2. ROPINIROLE HYDROCHLORIDE XR 2 MG, 4 MG, 6 MG, 8 MG AND 12 MG TABLETS [Suspect]
     Active Substance: ROPINIROLE HYDROCHLORIDE
     Indication: ON AND OFF PHENOMENON
     Route: 065

REACTIONS (2)
  - Alien limb syndrome [Recovered/Resolved]
  - Hallucination [Recovered/Resolved]
